FAERS Safety Report 16219459 (Version 2)
Quarter: 2020Q1

REPORT INFORMATION
  Report Type: Spontaneous
  Country: GB (occurrence: GB)
  Receive Date: 20190420
  Receipt Date: 20200130
  Transmission Date: 20200409
  Serious: Yes (Hospitalization, Other)
  Sender: FDA-Public Use
  Company Number: GB-SUN PHARMACEUTICAL INDUSTRIES LTD-2019R1-205710

PATIENT
  Age: 35 Year
  Sex: Female

DRUGS (6)
  1. RENNIE PEPPERMINT [Suspect]
     Active Substance: CALCIUM CARBONATE\MAGNESIUM CARBONATE
     Indication: ANTACID THERAPY
     Dosage: 72 CALCIUM CARBONATE AND HEAVY MAGNESIUM CARBONATE
     Route: 065
  2. GAVISCON /01279101/ [Suspect]
     Active Substance: ALUMINUM HYDROXIDE \CALCIUM CARBONATE\SODIUM ALGINATE\SODIUM BICARBONATE
     Indication: PRODUCT USED FOR UNKNOWN INDICATION
     Dosage: 600 ML PER WEEK FOR 8 MONTHS
     Route: 065
  3. IBUPROFEN. [Suspect]
     Active Substance: IBUPROFEN
     Indication: ANALGESIC THERAPY
     Dosage: 6 GRAM, QD
     Route: 065
  4. PARACETAMOL [Suspect]
     Active Substance: ACETAMINOPHEN
     Indication: BACK PAIN
     Dosage: 7.5 GRAM, QD
     Route: 065
  5. GAVISCON [Suspect]
     Active Substance: ALUMINUM HYDROXIDE\MAGNESIUM CARBONATE
     Indication: ANTACID THERAPY
     Dosage: 600 ML
     Route: 065
  6. CALCIUM CARBONATE W/MAGNESIUM CARBONATE/MAGNESIUM TRISILICATE [Suspect]
     Active Substance: CALCIUM CARBONATE\MAGNESIUM CARBONATE\MAGNESIUM TRISILICATE
     Indication: ANTACID THERAPY
     Dosage: 72 DOSAGE FORM, QD
     Route: 065

REACTIONS (9)
  - Self-medication [Recovered/Resolved]
  - Overdose [Recovered/Resolved]
  - Liver function test abnormal [Recovering/Resolving]
  - Haemoglobin decreased [Recovered/Resolved]
  - Gastric ulcer [Unknown]
  - Metabolic alkalosis [Recovering/Resolving]
  - Coagulopathy [Recovering/Resolving]
  - Epigastric discomfort [Recovering/Resolving]
  - Incorrect product administration duration [Unknown]
